FAERS Safety Report 6374731-0 (Version None)
Quarter: 2009Q3

REPORT INFORMATION
  Report Type: 
  Country: None (occurrence: None)
  Receive Date: 20090924
  Receipt Date: 20090910
  Transmission Date: 20100115
  Serious: Yes (Hospitalization, Other)
  Sender: FDA-Public Use
  Company Number: PHRM2005FR01377

PATIENT
  Sex: Female

DRUGS (9)
  1. SYNTOCINON [Suspect]
     Dosage: 15 IU, ONCE/SINGLE
     Dates: start: 20050330, end: 20050330
  2. SYNTOCINON [Suspect]
     Dosage: 5 IU, ONCE/SINGLE
     Route: 015
     Dates: start: 20050330, end: 20050330
  3. VOLUVEN [Suspect]
     Dosage: 2 DF, ONCE/SINGLE
     Dates: start: 20050330, end: 20050330
  4. NALADOR [Suspect]
     Dosage: 1000 UG, ONCE/SINGLE
     Dates: start: 20050330, end: 20050330
  5. RINGER LACTATE ^AGUETTANT^ [Suspect]
     Dosage: 2 DF, ONCE/SINGLE
     Dates: start: 20050330, end: 20050330
  6. OSMOTAN [Suspect]
     Dosage: 5 %, ONCE/SINGLE
     Dates: start: 20050330, end: 20050330
  7. DIPRIVAN [Concomitant]
     Dosage: UNK
     Route: 042
     Dates: start: 20050330, end: 20090401
  8. SUFENTANIL CITRATE [Concomitant]
     Dates: start: 20050330, end: 20050330
  9. MORPHINE [Concomitant]
     Dosage: 5 MG, ONCE/SINGLE
     Dates: start: 20050330, end: 20050330

REACTIONS (12)
  - ACTIVATED PARTIAL THROMBOPLASTIN TIME PROLONGED [None]
  - ACUTE PULMONARY OEDEMA [None]
  - ENDOTRACHEAL INTUBATION [None]
  - HAEMOGLOBIN DECREASED [None]
  - OXYGEN SATURATION DECREASED [None]
  - POSTPARTUM HAEMORRHAGE [None]
  - PROTHROMBIN TIME RATIO DECREASED [None]
  - RESPIRATORY DISTRESS [None]
  - SURGERY [None]
  - THERAPEUTIC EMBOLISATION [None]
  - TRANSFUSION-RELATED ACUTE LUNG INJURY [None]
  - UTERINE ATONY [None]
